FAERS Safety Report 25019839 (Version 7)
Quarter: 2025Q3

REPORT INFORMATION
  Report Type: Report from Study
  Country: EU (occurrence: EU)
  Receive Date: 20250227
  Receipt Date: 20250710
  Transmission Date: 20251020
  Serious: Yes (Death, Other)
  Sender: PFIZER
  Company Number: EU-GSK-FR2025GSK015538

PATIENT
  Age: 78 Year
  Sex: Female

DRUGS (46)
  1. PACLITAXEL [Suspect]
     Active Substance: PACLITAXEL
     Indication: Cervix carcinoma
     Dates: start: 20240809, end: 20241120
  2. PACLITAXEL [Suspect]
     Active Substance: PACLITAXEL
     Indication: Endometrial cancer recurrent
  3. CARBOPLATIN [Suspect]
     Active Substance: CARBOPLATIN
     Indication: Endometrial cancer recurrent
     Dates: start: 20240809, end: 20241120
  4. CARBOPLATIN [Suspect]
     Active Substance: CARBOPLATIN
     Indication: Cervix carcinoma
  5. DOSTARLIMAB [Suspect]
     Active Substance: DOSTARLIMAB
     Indication: Endometrial cancer recurrent
     Dosage: 500 MG, EVERY 3 WEEKS
     Route: 041
     Dates: start: 20240809
  6. DOSTARLIMAB [Suspect]
     Active Substance: DOSTARLIMAB
     Indication: Cervix carcinoma
     Dosage: 1000 MG, EVERY 3 WEEKS
     Route: 041
     Dates: end: 20241120
  7. CANDESARTAN [Concomitant]
     Active Substance: CANDESARTAN
     Indication: Type 1 diabetes mellitus
     Dosage: 4 MG (1/2) TABLET IN MORNING
  8. CANDESARTAN [Concomitant]
     Active Substance: CANDESARTAN
     Indication: Hypertension
  9. CANDESARTAN [Concomitant]
     Active Substance: CANDESARTAN
     Indication: Dyslipidaemia
  10. CANDESARTAN [Concomitant]
     Active Substance: CANDESARTAN
     Indication: Hypothyroidism
  11. ROSUVASTATIN [Concomitant]
     Active Substance: ROSUVASTATIN
     Indication: Type 1 diabetes mellitus
     Dosage: 20 MG 1 TABLET EVENING
  12. ROSUVASTATIN [Concomitant]
     Active Substance: ROSUVASTATIN
     Indication: Hypertension
  13. ROSUVASTATIN [Concomitant]
     Active Substance: ROSUVASTATIN
     Indication: Hypothyroidism
  14. ROSUVASTATIN [Concomitant]
     Active Substance: ROSUVASTATIN
     Indication: Dyslipidaemia
  15. FUROSEMIDE [Concomitant]
     Active Substance: FUROSEMIDE
     Indication: Type 1 diabetes mellitus
     Dosage: 40 MG, 0.5 TABLET, MORNING
  16. FUROSEMIDE [Concomitant]
     Active Substance: FUROSEMIDE
     Indication: Hypertension
  17. FUROSEMIDE [Concomitant]
     Active Substance: FUROSEMIDE
     Indication: Dyslipidaemia
  18. FUROSEMIDE [Concomitant]
     Active Substance: FUROSEMIDE
     Indication: Hypothyroidism
  19. PAROXETINE [Concomitant]
     Active Substance: PAROXETINE
     Indication: Type 1 diabetes mellitus
     Dosage: 20 MG, 1 TABLET, MORNING
  20. PAROXETINE [Concomitant]
     Active Substance: PAROXETINE
     Indication: Hypertension
  21. PAROXETINE [Concomitant]
     Active Substance: PAROXETINE
     Indication: Hypothyroidism
  22. PAROXETINE [Concomitant]
     Active Substance: PAROXETINE
     Indication: Dyslipidaemia
  23. OXAZEPAM [Concomitant]
     Active Substance: OXAZEPAM
     Indication: Type 1 diabetes mellitus
     Dosage: 10 MG (SERESTA), 1 TABLET, AT 10 PM
  24. OXAZEPAM [Concomitant]
     Active Substance: OXAZEPAM
     Indication: Hypertension
  25. OXAZEPAM [Concomitant]
     Active Substance: OXAZEPAM
     Indication: Hypothyroidism
  26. OXAZEPAM [Concomitant]
     Active Substance: OXAZEPAM
     Indication: Dyslipidaemia
  27. MIANSERIN [Concomitant]
     Active Substance: MIANSERIN
     Indication: Type 1 diabetes mellitus
     Dosage: 30 MG, 1 TABLET, NIGHT
  28. MIANSERIN [Concomitant]
     Active Substance: MIANSERIN
     Indication: Hypertension
  29. MIANSERIN [Concomitant]
     Active Substance: MIANSERIN
     Indication: Hypothyroidism
  30. MIANSERIN [Concomitant]
     Active Substance: MIANSERIN
     Indication: Dyslipidaemia
  31. PANTOPRAZOLE [Concomitant]
     Active Substance: PANTOPRAZOLE
     Indication: Type 1 diabetes mellitus
     Dosage: 20 MG, 1 TABLET, EVENING
  32. PANTOPRAZOLE [Concomitant]
     Active Substance: PANTOPRAZOLE
     Indication: Hypertension
  33. PANTOPRAZOLE [Concomitant]
     Active Substance: PANTOPRAZOLE
     Indication: Hypothyroidism
  34. PANTOPRAZOLE [Concomitant]
     Active Substance: PANTOPRAZOLE
     Indication: Dyslipidaemia
  35. LEVOTHYROXINE [Concomitant]
     Active Substance: LEVOTHYROXINE
     Indication: Type 1 diabetes mellitus
     Dosage: 125 UG 1 TABLET, MORNING
  36. LEVOTHYROXINE [Concomitant]
     Active Substance: LEVOTHYROXINE
     Indication: Hypertension
  37. LEVOTHYROXINE [Concomitant]
     Active Substance: LEVOTHYROXINE
     Indication: Hypothyroidism
  38. LEVOTHYROXINE [Concomitant]
     Active Substance: LEVOTHYROXINE
     Indication: Dyslipidaemia
  39. NOVORAPID [Concomitant]
     Active Substance: INSULIN ASPART
     Indication: Type 1 diabetes mellitus
  40. NOVORAPID [Concomitant]
     Active Substance: INSULIN ASPART
     Indication: Hypertension
  41. NOVORAPID [Concomitant]
     Active Substance: INSULIN ASPART
     Indication: Hypothyroidism
  42. NOVORAPID [Concomitant]
     Active Substance: INSULIN ASPART
     Indication: Dyslipidaemia
  43. LEVEMIR [Concomitant]
     Active Substance: INSULIN DETEMIR
     Indication: Type 1 diabetes mellitus
  44. LEVEMIR [Concomitant]
     Active Substance: INSULIN DETEMIR
     Indication: Hypertension
  45. LEVEMIR [Concomitant]
     Active Substance: INSULIN DETEMIR
     Indication: Hypothyroidism
  46. LEVEMIR [Concomitant]
     Active Substance: INSULIN DETEMIR
     Indication: Dyslipidaemia

REACTIONS (1)
  - Autoimmune myocarditis [Fatal]

NARRATIVE: CASE EVENT DATE: 20241223
